FAERS Safety Report 4733316-X (Version None)
Quarter: 2005Q3

REPORT INFORMATION
  Report Type: 
  Country: None (occurrence: None)
  Receive Date: 20050721
  Receipt Date: 20050516
  Transmission Date: 20060218
  Serious: No
  Sender: FDA-Public Use
  Company Number: 2005SP000830

PATIENT
  Sex: Male

DRUGS (1)
  1. LUNESTA [Suspect]

REACTIONS (1)
  - HANGOVER [None]
